FAERS Safety Report 4756812-8 (Version None)
Quarter: 2005Q3

REPORT INFORMATION
  Report Type: 
  Country: None (occurrence: None)
  Receive Date: 20050830
  Receipt Date: 20050823
  Transmission Date: 20060218
  Serious: Yes (Hospitalization)
  Sender: FDA-Public Use
  Company Number: ES-BRISTOL-MYERS SQUIBB COMPANY-13088067

PATIENT
  Age: 34 Year
  Sex: Female
  Weight: 109 kg

DRUGS (14)
  1. CYCLOPHOSPHAMIDE [Suspect]
  2. VINCRISTINE SULFATE [Suspect]
  3. ACETYLCYSTEINE [Suspect]
     Dates: start: 20050311
  4. BENZOCAINE [Suspect]
  5. NEULASTA [Suspect]
     Indication: CHEMOTHERAPY
     Route: 058
     Dates: start: 20041218, end: 20050312
  6. RITUXIMAB [Suspect]
  7. PREDNISONE [Suspect]
  8. DOXORUBICIN HYDROCHLORIDE [Suspect]
     Dates: start: 20041217, end: 20050311
  9. ASCORBIC ACID [Suspect]
     Dates: start: 20040311
  10. DEXTROMETHORPHAN HYDROBROMIDE [Suspect]
     Route: 048
     Dates: start: 20040311
  11. RANITIDINE HCL [Concomitant]
     Route: 048
     Dates: start: 20040909
  12. ALLOPURINOL [Concomitant]
     Route: 048
     Dates: start: 20041209
  13. PARACETAMOL [Concomitant]
     Route: 048
     Dates: start: 20041209
  14. TRAMADOL HCL [Concomitant]

REACTIONS (1)
  - AGRANULOCYTOSIS [None]
